FAERS Safety Report 7786064-6 (Version None)
Quarter: 2011Q3

REPORT INFORMATION
  Report Type: 
  Country: None (occurrence: None)
  Receive Date: 20110929
  Receipt Date: 20110916
  Transmission Date: 20111222
  Serious: Yes (Hospitalization, Other)
  Sender: FDA-Public Use
  Company Number: US-ELI_LILLY_AND_COMPANY-US201005002461

PATIENT
  Sex: Female

DRUGS (8)
  1. CALCIUM CARBONATE [Concomitant]
  2. FORTEO [Suspect]
     Indication: OSTEOPOROSIS
     Dosage: 20 UG, DAILY (1/D)
     Dates: start: 20090904
  3. FORTEO [Suspect]
     Dosage: 20 UG, QD
     Dates: end: 20110904
  4. FORTEO [Suspect]
     Dosage: 20 UG, DAILY (1/D)
     Route: 065
  5. MULTI-VITAMIN [Concomitant]
  6. GARLIC [Concomitant]
  7. VITAMIN D [Concomitant]
  8. MAGNESIUM [Concomitant]

REACTIONS (14)
  - PRURITUS [None]
  - TONGUE COATED [None]
  - SINUS DISORDER [None]
  - RASH [None]
  - CHEST PAIN [None]
  - MYOCARDIAL INFARCTION [None]
  - ACNE [None]
  - DRY SKIN [None]
  - SKIN EXFOLIATION [None]
  - CARDIAC DISORDER [None]
  - NASAL CONGESTION [None]
  - TONGUE DISCOLOURATION [None]
  - DRY MOUTH [None]
  - WEIGHT DECREASED [None]
